FAERS Safety Report 4705234-4 (Version None)
Quarter: 2005Q3

REPORT INFORMATION
  Report Type: 
  Country: None (occurrence: None)
  Receive Date: 20050701
  Receipt Date: 20050113
  Transmission Date: 20060218
  Serious: Yes (Hospitalization)
  Sender: FDA-Public Use
  Company Number: IL-ROCHE-392275

PATIENT
  Age: 58 Year
  Sex: Female
  Weight: 79 kg

DRUGS (10)
  1. CAPECITABINE [Suspect]
     Dosage: GIVEN FROM DAYS ONE TO FOURTEEN OF A THREE WEEK CYCLE.
     Route: 048
     Dates: start: 20041021
  2. BEVACIZUMAB [Suspect]
     Route: 042
     Dates: start: 20041021
  3. CAMPTO [Suspect]
     Indication: COLORECTAL CANCER
     Dosage: GIVEN ON DAYS 1, 8 AND 21OF A THREE WEEK CYCLE.
     Route: 042
     Dates: start: 20041021
  4. PROCTO-GLYVENOL SUPPOSITORIUM [Concomitant]
     Dates: start: 20041111
  5. CONVERTIN [Concomitant]
     Dates: start: 19990615
  6. GASTRO [Concomitant]
     Dates: start: 20041209
  7. OXYCONTIN [Concomitant]
     Dates: start: 20050414
  8. DURAGESIC-100 [Concomitant]
     Dates: start: 20050328
  9. ZANTAC [Concomitant]
     Dates: start: 20050524
  10. EPREX [Concomitant]
     Dosage: DAILY DOSE REPORTED AS ^40,000^ (NO UNITS PROVIDED).
     Dates: start: 20050602, end: 20050602

REACTIONS (6)
  - ABDOMINAL PAIN [None]
  - HAEMORRHOIDS [None]
  - INTESTINAL OBSTRUCTION [None]
  - OESOPHAGITIS [None]
  - URINARY TRACT INFECTION [None]
  - VOMITING [None]
